FAERS Safety Report 11077198 (Version 2)
Quarter: 2015Q2

REPORT INFORMATION
  Report Type: Spontaneous
  Country: DE (occurrence: DE)
  Receive Date: 20150429
  Receipt Date: 20150520
  Transmission Date: 20150821
  Serious: Yes (Other)
  Sender: FDA-Public Use
  Company Number: DE-BRISTOL-MYERS SQUIBB COMPANY-BMS-2015-023824

PATIENT
  Age: 55 Year
  Sex: Female
  Weight: 87 kg

DRUGS (1)
  1. ELIQUIS [Suspect]
     Active Substance: APIXABAN
     Indication: THROMBOSIS PROPHYLAXIS
     Dosage: 2.5 MG, BID
     Route: 048
     Dates: start: 20150119, end: 20150327

REACTIONS (2)
  - Hepatitis [Recovered/Resolved]
  - Abdominal pain [Unknown]

NARRATIVE: CASE EVENT DATE: 201501
